FAERS Safety Report 8278684-X (Version None)
Quarter: 2012Q2

REPORT INFORMATION
  Report Type: 
  Country: None (occurrence: None)
  Receive Date: 20120412
  Receipt Date: 20110321
  Transmission Date: 20120825
  Serious: No
  Sender: FDA-Public Use
  Company Number: US-ASTRAZENECA-2011SE16342

PATIENT
  Sex: Female

DRUGS (2)
  1. TOPROL-XL [Concomitant]
  2. NEXIUM [Suspect]
     Dosage: EVERY OTHER DAY
     Route: 048

REACTIONS (3)
  - FAECES DISCOLOURED [None]
  - GASTROOESOPHAGEAL REFLUX DISEASE [None]
  - INAPPROPRIATE SCHEDULE OF DRUG ADMINISTRATION [None]
